FAERS Safety Report 6397198-5 (Version None)
Quarter: 2009Q4

REPORT INFORMATION
  Report Type: 
  Country: None (occurrence: None)
  Receive Date: 20091012
  Receipt Date: 20091008
  Transmission Date: 20100525
  Serious: Yes (Life-Threatening, Hospitalization, Disabling)
  Sender: FDA-Public Use
  Company Number: US-B.I. PHARMACEUTICALS,INC./RIDGEFIELD-2009-BP-11078BP

PATIENT
  Age: 77 Year
  Sex: Male
  Weight: 67.59 kg

DRUGS (6)
  1. SPIRIVA [Suspect]
     Dosage: 18 MCG
     Route: 055
     Dates: start: 20081107, end: 20081210
  2. OMEPRAZOLE [Concomitant]
     Dosage: 20 MG
  3. COMBIVENT [Concomitant]
  4. PRAVASTATIN [Concomitant]
     Dosage: 40 MG
  5. VITAMIN/MINERAL SUPPLEMENT [Concomitant]
  6. GABAPENTIN [Concomitant]
     Dosage: 600 MG

REACTIONS (1)
  - HAEMORRHAGIC STROKE [None]
